FAERS Safety Report 12689490 (Version 1)
Quarter: 2016Q3

REPORT INFORMATION
  Report Type: Spontaneous
  Country: US (occurrence: US)
  Receive Date: 20160826
  Receipt Date: 20160826
  Transmission Date: 20161109
  Serious: Yes (Death, Hospitalization, Other)
  Sender: FDA-Public Use
  Company Number: US-GLAXOSMITHKLINE-US2016GSK123819

PATIENT
  Age: 13 Year
  Sex: Female

DRUGS (1)
  1. BUPROPION. [Suspect]
     Active Substance: BUPROPION
     Indication: DEPRESSION
     Dosage: 21000 MG, UNK

REACTIONS (17)
  - Completed suicide [Fatal]
  - Papilloedema [Unknown]
  - Coma [Fatal]
  - Brain stem syndrome [Unknown]
  - Hypokinesia [Unknown]
  - Electrocardiogram QT prolonged [Unknown]
  - Cardiac fibrillation [Unknown]
  - Resuscitation [Unknown]
  - Overdose [Fatal]
  - Hypoperfusion [Unknown]
  - Seizure [Unknown]
  - Cardiac arrest [Unknown]
  - Electroencephalogram abnormal [Unknown]
  - Mydriasis [Unknown]
  - Brain oedema [Unknown]
  - Unresponsive to stimuli [Unknown]
  - Tachycardia [Unknown]
